FAERS Safety Report 4585533-X (Version None)
Quarter: 2005Q1

REPORT INFORMATION
  Report Type: 
  Country: None (occurrence: None)
  Receive Date: 20050214
  Receipt Date: 20050204
  Transmission Date: 20050727
  Serious: Yes (Hospitalization)
  Sender: FDA-Public Use
  Company Number: 21887

PATIENT
  Age: 59 Year
  Sex: Male
  Weight: 70.3075 kg

DRUGS (9)
  1. NIASPAN [Suspect]
     Indication: BLOOD CHOLESTEROL INCREASED
     Dosage: 500 MG QHS PO
     Route: 048
     Dates: start: 20020101, end: 20020101
  2. ALTACE [Concomitant]
  3. LIPITOR [Concomitant]
  4. TOPROL-XL [Concomitant]
  5. PLAVIX [Concomitant]
  6. NITRO [Concomitant]
  7. NEXIUM [Concomitant]
  8. CLINDOM-EDP [Concomitant]
  9. CITRACEL [Concomitant]

REACTIONS (9)
  - DYSPNOEA [None]
  - FACE INJURY [None]
  - FALL [None]
  - FEELING ABNORMAL [None]
  - FLUSHING [None]
  - INJURY [None]
  - PRURITUS [None]
  - RASH MACULAR [None]
  - SYNCOPE [None]
